FAERS Safety Report 9639670 (Version 1)
Quarter: 2013Q4

REPORT INFORMATION
  Report Type: Spontaneous
  Country: US (occurrence: US)
  Receive Date: 20131023
  Receipt Date: 20131023
  Transmission Date: 20140711
  Serious: No
  Sender: FDA-Public Use
  Company Number: US-009507513-1310USA008797

PATIENT
  Sex: Female
  Weight: 68.93 kg

DRUGS (1)
  1. ELAVIL [Suspect]

REACTIONS (1)
  - Swollen tongue [Unknown]
